FAERS Safety Report 21318312 (Version 5)
Quarter: 2023Q2

REPORT INFORMATION
  Report Type: Spontaneous
  Country: US (occurrence: US)
  Receive Date: 20220911
  Receipt Date: 20230609
  Transmission Date: 20230721
  Serious: No
  Sender: FDA-Public Use
  Company Number: US-SA-SAC20220825000782

PATIENT
  Sex: Female

DRUGS (1)
  1. DUPIXENT [Suspect]
     Active Substance: DUPILUMAB
     Indication: Asthma
     Dosage: 200 MG, QOW
     Route: 058
     Dates: start: 202105

REACTIONS (15)
  - Hyperhidrosis [Unknown]
  - Acne cystic [Unknown]
  - Pain of skin [Unknown]
  - Fibromyalgia [Unknown]
  - Fatigue [Unknown]
  - Skin irritation [Unknown]
  - Photosensitivity reaction [Unknown]
  - Flushing [Unknown]
  - Skin swelling [Recovering/Resolving]
  - Pruritus [Unknown]
  - Herpes zoster [Recovering/Resolving]
  - Skin exfoliation [Unknown]
  - Erythema [Unknown]
  - Arthralgia [Unknown]
  - Rash macular [Unknown]
